FAERS Safety Report 10940430 (Version 2)
Quarter: 2015Q2

REPORT INFORMATION
  Report Type: Spontaneous
  Country: US (occurrence: US)
  Receive Date: 20150322
  Receipt Date: 20150524
  Transmission Date: 20150821
  Serious: Yes (Other)
  Sender: FDA-Public Use
  Company Number: US-JNJFOC-20150103743

PATIENT
  Age: 4 Decade

DRUGS (1)
  1. ABCIXIMAB [Suspect]
     Active Substance: ABCIXIMAB
     Indication: ISCHAEMIC STROKE
     Route: 013

REACTIONS (7)
  - Epidural haemorrhage [Recovered/Resolved]
  - Procedural haemorrhage [Recovered/Resolved]
  - Subarachnoid haemorrhage [Recovered/Resolved]
  - Cerebral haemorrhage [Recovered/Resolved]
  - Product use issue [Unknown]
  - Pharyngeal haemorrhage [Recovered/Resolved]
  - Incorrect route of drug administration [Unknown]
